FAERS Safety Report 20883287 (Version 1)
Quarter: 2022Q2

REPORT INFORMATION
  Report Type: Spontaneous
  Country: US (occurrence: None)
  Receive Date: 20220526
  Receipt Date: 20220526
  Transmission Date: 20220721
  Serious: Yes (Life-Threatening, Hospitalization, Other)
  Sender: FDA-Public Use
  Company Number: None

PATIENT
  Age: 26 Year
  Sex: Male
  Weight: 66.4 kg

DRUGS (2)
  1. CLOZAPINE [Suspect]
     Active Substance: CLOZAPINE
     Dosage: FREQUENCY : AT BEDTIME;?
     Route: 048
     Dates: start: 20220426
  2. QUETIAPINE [Concomitant]
     Active Substance: QUETIAPINE
     Dates: start: 20220426

REACTIONS (6)
  - Abdominal pain [None]
  - Abdominal distension [None]
  - Pyrexia [None]
  - Colitis ischaemic [None]
  - Colon gangrene [None]
  - Gastrointestinal hypomotility [None]

NARRATIVE: CASE EVENT DATE: 20220521
